FAERS Safety Report 5028897-5 (Version None)
Quarter: 2006Q2

REPORT INFORMATION
  Report Type: 
  Country: None (occurrence: None)
  Receive Date: 20060619
  Receipt Date: 20060526
  Transmission Date: 20061013
  Serious: Yes (Other)
  Sender: FDA-Public Use
  Company Number: US-GLAXOSMITHKLINE-A0607086A

PATIENT
  Age: 65 Year
  Sex: Female
  Weight: 78.2 kg

DRUGS (7)
  1. AVANDIA [Suspect]
     Indication: DIABETES MELLITUS NON-INSULIN-DEPENDENT
     Route: 048
     Dates: start: 20040707, end: 20060531
  2. DIOVAN [Concomitant]
     Route: 048
     Dates: start: 20040707
  3. METFORMIN HCL [Concomitant]
     Dosage: 1000MG TWICE PER DAY
     Route: 048
     Dates: start: 20020515
  4. ASPIRIN [Concomitant]
     Route: 048
  5. GLIPIZIDE [Concomitant]
     Dosage: 10MG TWICE PER DAY
     Route: 048
     Dates: start: 20030729
  6. XALATAN [Concomitant]
     Route: 031
  7. LOVASTATIN [Concomitant]
     Route: 048
     Dates: start: 20060116

REACTIONS (4)
  - CATARACT [None]
  - MACULAR OEDEMA [None]
  - MACULOPATHY [None]
  - VISUAL ACUITY TESTS ABNORMAL [None]
